FAERS Safety Report 8495744-9 (Version None)
Quarter: 2012Q3

REPORT INFORMATION
  Report Type: 
  Country: None (occurrence: None)
  Receive Date: 20120709
  Receipt Date: 20120705
  Transmission Date: 20120928
  Serious: Yes (Other)
  Sender: FDA-Public Use
  Company Number: US-ROCHE-1084523

PATIENT

DRUGS (1)
  1. ACCUTANE [Suspect]
     Indication: ACNE

REACTIONS (2)
  - CROHN'S DISEASE [None]
  - ANAL FISTULA [None]
